FAERS Safety Report 6502594-9 (Version None)
Quarter: 2009Q4

REPORT INFORMATION
  Report Type: 
  Country: None (occurrence: None)
  Receive Date: 20091127
  Receipt Date: 20090818
  Transmission Date: 20100525
  Serious: No
  Sender: FDA-Public Use
  Company Number: 002237

PATIENT
  Age: 38 Year
  Sex: Female

DRUGS (3)
  1. LACOSAMIDE [Suspect]
     Indication: CONVULSION
     Dosage: (50 MG BID ORAL)
     Route: 048
  2. TRILEPTAL [Concomitant]
  3. ZONEGRAN [Concomitant]

REACTIONS (1)
  - PRURITUS [None]
